FAERS Safety Report 6204711-7 (Version None)
Quarter: 2009Q2

REPORT INFORMATION
  Report Type: 
  Country: None (occurrence: None)
  Receive Date: 20090527
  Receipt Date: 20090525
  Transmission Date: 20091009
  Serious: Yes (Death)
  Sender: FDA-Public Use
  Company Number: PHHY2009CL20231

PATIENT
  Age: 73 Year
  Sex: Male

DRUGS (1)
  1. EXELON [Suspect]
     Indication: DEMENTIA ALZHEIMER'S TYPE
     Dosage: PATCH 10, ONE PATCH PER DAY
     Route: 062
     Dates: start: 20080101

REACTIONS (1)
  - PNEUMONIA [None]
